FAERS Safety Report 18568691 (Version 2)
Quarter: 2020Q4

REPORT INFORMATION
  Report Type: Report from Study
  Country: None (occurrence: US)
  Receive Date: 20201202
  Receipt Date: 20201222
  Transmission Date: 20210114
  Serious: Yes (Hospitalization, Other)
  Sender: FDA-Public Use
  Company Number: US-ABBVIE-20K-163-3671575-00

PATIENT
  Sex: Female

DRUGS (2)
  1. HUMIRA [Suspect]
     Active Substance: ADALIMUMAB
     Indication: PRODUCT USED FOR UNKNOWN INDICATION
     Route: 058
     Dates: end: 20201108
  2. HUMIRA [Suspect]
     Active Substance: ADALIMUMAB
     Route: 058
     Dates: start: 2020, end: 20201206

REACTIONS (7)
  - Gastrointestinal disorder [Unknown]
  - Hernia [Unknown]
  - Gastric disorder [Unknown]
  - Constipation [Unknown]
  - Gastric mucosal lesion [Unknown]
  - Gastrointestinal scarring [Unknown]
  - Respiratory disorder [Unknown]
